FAERS Safety Report 7215415-6 (Version None)
Quarter: 2011Q1

REPORT INFORMATION
  Report Type: 
  Country: None (occurrence: None)
  Receive Date: 20110105
  Receipt Date: 20110105
  Transmission Date: 20110831
  Serious: Yes (Other)
  Sender: FDA-Public Use
  Company Number: None

PATIENT
  Sex: Female
  Weight: 96.6162 kg

DRUGS (1)
  1. MIRENA [Suspect]
     Indication: CONTRACEPTION
     Dates: start: 20091101, end: 20100104

REACTIONS (11)
  - NIGHT SWEATS [None]
  - SKIN ODOUR ABNORMAL [None]
  - VAGINAL HAEMORRHAGE [None]
  - SINUSITIS [None]
  - INSOMNIA [None]
  - LIBIDO DECREASED [None]
  - FEELING ABNORMAL [None]
  - WEIGHT INCREASED [None]
  - FATIGUE [None]
  - DEVICE ISSUE [None]
  - BACTERIAL INFECTION [None]
